FAERS Safety Report 6811094-8 (Version None)
Quarter: 2010Q2

REPORT INFORMATION
  Report Type: 
  Country: None (occurrence: None)
  Receive Date: 20100630
  Receipt Date: 20090518
  Transmission Date: 20101027
  Serious: No
  Sender: FDA-Public Use
  Company Number: US-PFIZER INC-2009176904

PATIENT
  Sex: Male
  Weight: 74.842 kg

DRUGS (4)
  1. NICOTROL [Suspect]
     Indication: SMOKING CESSATION THERAPY
     Dosage: UNK
  2. NICOTROL [Suspect]
     Dosage: UNK
     Dates: start: 20081201
  3. AVALIDE [Concomitant]
     Dosage: UNK
  4. CARDIOVASCULAR SYSTEM DRUGS [Concomitant]
     Dosage: UNK

REACTIONS (3)
  - LACRIMATION INCREASED [None]
  - NASAL DISCOMFORT [None]
  - RHINORRHOEA [None]
